FAERS Safety Report 10222418 (Version 3)
Quarter: 2014Q3

REPORT INFORMATION
  Report Type: Report from Study
  Country: US (occurrence: US)
  Receive Date: 20140606
  Receipt Date: 20140926
  Transmission Date: 20150326
  Serious: Yes (Hospitalization)
  Sender: FDA-Public Use
  Company Number: US-ACTELION-A-NJ2014-98542

PATIENT
  Age: 72 Year
  Sex: Female

DRUGS (4)
  1. WARFARIN [Concomitant]
     Active Substance: WARFARIN
  2. MACITENTAN [Suspect]
     Active Substance: MACITENTAN
     Indication: PULMONARY ARTERIAL HYPERTENSION
     Dosage: 10 MG, QD
     Route: 048
     Dates: start: 20140212
  3. MACITENTAN [Suspect]
     Active Substance: MACITENTAN
     Dosage: UNK
     Route: 048
  4. TYVASO [Concomitant]
     Active Substance: TREPROSTINIL

REACTIONS (6)
  - Pneumonia [Unknown]
  - Fluid retention [Recovered/Resolved]
  - Peripheral swelling [Recovered/Resolved]
  - Cardiac failure congestive [Unknown]
  - Respiratory tract congestion [Unknown]
  - Dyspnoea [Unknown]

NARRATIVE: CASE EVENT DATE: 201404
